FAERS Safety Report 18896702 (Version 2)
Quarter: 2021Q2

REPORT INFORMATION
  Report Type: Spontaneous
  Country: US (occurrence: US)
  Receive Date: 20210215
  Receipt Date: 20210517
  Transmission Date: 20210717
  Serious: Yes (Other)
  Sender: FDA-Public Use
  Company Number: US-GLAXOSMITHKLINE-US2021GSK041615

PATIENT
  Sex: Female

DRUGS (8)
  1. RANITIDINE. [Suspect]
     Active Substance: RANITIDINE
     Indication: CROHN^S DISEASE
  2. RANITIDINE. [Suspect]
     Active Substance: RANITIDINE
     Indication: INTESTINAL ULCER
     Dosage: UNK, QD
     Route: 065
     Dates: start: 200001, end: 201712
  3. ZANTAC [Suspect]
     Active Substance: RANITIDINE HYDROCHLORIDE
     Indication: CROHN^S DISEASE
  4. RANITIDINE. [Suspect]
     Active Substance: RANITIDINE
     Indication: INTESTINAL ULCER
     Dosage: UNK, QD
     Route: 065
     Dates: start: 200001, end: 201712
  5. ZANTAC [Suspect]
     Active Substance: RANITIDINE HYDROCHLORIDE
     Indication: INTESTINAL ULCER
     Dosage: UNKNOWN AT THIS TIME OVER THE COUNTER
     Route: 065
     Dates: start: 199501, end: 201712
  6. ZANTAC [Suspect]
     Active Substance: RANITIDINE HYDROCHLORIDE
     Indication: INTESTINAL ULCER
     Dosage: UNKNOWN AT THIS TIME OVER THE COUNTER
     Route: 065
     Dates: start: 199501, end: 201712
  7. ZANTAC [Suspect]
     Active Substance: RANITIDINE HYDROCHLORIDE
     Indication: CROHN^S DISEASE
  8. RANITIDINE. [Suspect]
     Active Substance: RANITIDINE
     Indication: CROHN^S DISEASE

REACTIONS (1)
  - Gastrointestinal carcinoma [Unknown]
